FAERS Safety Report 14046132 (Version 5)
Quarter: 2018Q1

REPORT INFORMATION
  Report Type: Spontaneous
  Country: AT (occurrence: AT)
  Receive Date: 20171005
  Receipt Date: 20180105
  Transmission Date: 20180508
  Serious: Yes (Hospitalization, Other)
  Sender: FDA-Public Use
  Company Number: AT-JNJFOC-20170929088

PATIENT
  Age: 20 Year
  Sex: Male
  Weight: 82 kg

DRUGS (40)
  1. HALDOL [Suspect]
     Active Substance: HALOPERIDOL
     Indication: AGITATION
     Route: 048
     Dates: start: 20161211, end: 20161211
  2. HALDOL [Concomitant]
     Active Substance: HALOPERIDOL
     Route: 048
     Dates: start: 20161121, end: 20161121
  3. ATARAX [Concomitant]
     Active Substance: HYDROXYZINE HYDROCHLORIDE
     Route: 065
     Dates: start: 20161209, end: 20161209
  4. HOVA [Concomitant]
     Active Substance: HERBALS\HOPS\VALERIAN
     Route: 048
     Dates: start: 20161201, end: 20161205
  5. NOZINAN [Suspect]
     Active Substance: LEVOMEPROMAZINE
     Indication: PRODUCT USED FOR UNKNOWN INDICATION
     Route: 048
     Dates: start: 20161122, end: 20161122
  6. AMPHETAMINE [Suspect]
     Active Substance: AMPHETAMINE
     Indication: PRODUCT USED FOR UNKNOWN INDICATION
     Route: 065
  7. HALDOL [Concomitant]
     Active Substance: HALOPERIDOL
     Route: 048
     Dates: start: 20161210, end: 20161210
  8. ATARAX [Concomitant]
     Active Substance: HYDROXYZINE HYDROCHLORIDE
     Route: 065
     Dates: start: 20161130, end: 20161130
  9. TEMESTA (LORAZEPAM) [Concomitant]
     Active Substance: LORAZEPAM
     Indication: AGITATION
     Route: 065
     Dates: start: 20161121, end: 20161121
  10. NOCTOR [Concomitant]
     Route: 065
     Dates: start: 20161201, end: 20161206
  11. HALDOL [Suspect]
     Active Substance: HALOPERIDOL
     Indication: AGITATION
     Route: 048
     Dates: start: 20161121, end: 20161122
  12. NOZINAN [Suspect]
     Active Substance: LEVOMEPROMAZINE
     Indication: PRODUCT USED FOR UNKNOWN INDICATION
     Route: 048
     Dates: start: 20161206, end: 20161206
  13. TEMESTA (LORAZEPAM) [Concomitant]
     Active Substance: LORAZEPAM
     Indication: AGITATION
     Dosage: 1-3 MG
     Route: 065
     Dates: start: 20161208, end: 20161211
  14. OLANZAPINE. [Concomitant]
     Active Substance: OLANZAPINE
     Route: 048
     Dates: start: 20161124, end: 20161124
  15. HALDOL [Suspect]
     Active Substance: HALOPERIDOL
     Indication: AGITATION
     Route: 048
     Dates: start: 20161123, end: 20161123
  16. ZYPREXA [Suspect]
     Active Substance: OLANZAPINE
     Indication: PARANOIA
     Route: 065
     Dates: start: 2016
  17. ABILIFY [Suspect]
     Active Substance: ARIPIPRAZOLE
     Indication: PRODUCT USED FOR UNKNOWN INDICATION
     Route: 048
     Dates: start: 2016, end: 20161122
  18. NOZINAN [Suspect]
     Active Substance: LEVOMEPROMAZINE
     Indication: PRODUCT USED FOR UNKNOWN INDICATION
     Route: 048
     Dates: start: 20161123, end: 20161123
  19. NOZINAN [Suspect]
     Active Substance: LEVOMEPROMAZINE
     Indication: PRODUCT USED FOR UNKNOWN INDICATION
     Route: 048
     Dates: start: 20161125, end: 20161125
  20. NOZINAN [Suspect]
     Active Substance: LEVOMEPROMAZINE
     Indication: PRODUCT USED FOR UNKNOWN INDICATION
     Route: 048
     Dates: start: 20161126, end: 20161127
  21. HALDOL [Concomitant]
     Active Substance: HALOPERIDOL
     Route: 048
     Dates: start: 20161208, end: 20161208
  22. HALDOL [Concomitant]
     Active Substance: HALOPERIDOL
     Route: 048
     Dates: start: 20161211, end: 20161211
  23. ATARAX [Concomitant]
     Active Substance: HYDROXYZINE HYDROCHLORIDE
     Route: 065
     Dates: start: 20161129, end: 20161129
  24. HOVA [Concomitant]
     Active Substance: HERBALS\HOPS\VALERIAN
     Route: 048
     Dates: start: 20161124, end: 20161124
  25. NOCTOR [Concomitant]
     Route: 065
     Dates: start: 20161208, end: 20161209
  26. NOCTOR [Concomitant]
     Route: 065
     Dates: start: 20161211, end: 20161211
  27. HALDOL [Suspect]
     Active Substance: HALOPERIDOL
     Indication: AGITATION
     Route: 048
     Dates: start: 20161210, end: 20161210
  28. ABILIFY [Suspect]
     Active Substance: ARIPIPRAZOLE
     Indication: PRODUCT USED FOR UNKNOWN INDICATION
     Route: 048
     Dates: start: 20160704, end: 2016
  29. NOZINAN [Suspect]
     Active Substance: LEVOMEPROMAZINE
     Indication: PRODUCT USED FOR UNKNOWN INDICATION
     Route: 048
     Dates: start: 20161124, end: 20161124
  30. MORPHINE [Suspect]
     Active Substance: MORPHINE
     Indication: PRODUCT USED FOR UNKNOWN INDICATION
     Route: 065
  31. OLANZAPINE. [Concomitant]
     Active Substance: OLANZAPINE
     Route: 048
     Dates: start: 20161125, end: 20161205
  32. NOZINAN [Suspect]
     Active Substance: LEVOMEPROMAZINE
     Indication: PRODUCT USED FOR UNKNOWN INDICATION
     Route: 048
     Dates: start: 20161204, end: 20161204
  33. METHAMPHETAMINE [Suspect]
     Active Substance: METHAMPHETAMINE
     Indication: PRODUCT USED FOR UNKNOWN INDICATION
     Route: 065
  34. HALDOL [Suspect]
     Active Substance: HALOPERIDOL
     Indication: AGITATION
     Route: 048
     Dates: start: 20161208, end: 20161208
  35. NOZINAN [Suspect]
     Active Substance: LEVOMEPROMAZINE
     Indication: PRODUCT USED FOR UNKNOWN INDICATION
     Route: 048
     Dates: start: 20161202, end: 20161202
  36. ATARAX [Concomitant]
     Active Substance: HYDROXYZINE HYDROCHLORIDE
     Route: 065
     Dates: start: 20161127, end: 20161127
  37. ATARAX [Concomitant]
     Active Substance: HYDROXYZINE HYDROCHLORIDE
     Route: 065
     Dates: start: 20161201, end: 20161201
  38. HOVA [Concomitant]
     Active Substance: HERBALS\HOPS\VALERIAN
     Route: 048
     Dates: start: 20161122, end: 20161122
  39. HOVA [Concomitant]
     Active Substance: HERBALS\HOPS\VALERIAN
     Route: 048
     Dates: start: 20161209, end: 20161209
  40. HALDOL [Concomitant]
     Active Substance: HALOPERIDOL
     Route: 048
     Dates: start: 20161123, end: 20161211

REACTIONS (10)
  - Psychotic symptom [Not Recovered/Not Resolved]
  - Wrong technique in product usage process [Unknown]
  - Toxicity to various agents [Unknown]
  - Pharyngeal dyskinesia [Recovered/Resolved]
  - Muscle spasms [Recovered/Resolved]
  - Suicidal ideation [Unknown]
  - Oropharyngeal spasm [Recovered/Resolved]
  - Liver function test increased [Recovered/Resolved]
  - Dyskinesia [Unknown]
  - Dysphagia [Recovered/Resolved]

NARRATIVE: CASE EVENT DATE: 20161123
